FAERS Safety Report 9236404 (Version 2)
Quarter: 2013Q2

REPORT INFORMATION
  Report Type: Spontaneous
  Country: US (occurrence: US)
  Receive Date: 20130417
  Receipt Date: 20130516
  Transmission Date: 20140414
  Serious: Yes (Hospitalization)
  Sender: FDA-Public Use
  Company Number: US-009507513-1304USA003738

PATIENT
  Sex: Male

DRUGS (6)
  1. ZOCOR [Suspect]
     Indication: BLOOD CHOLESTEROL
     Dosage: 20 MG, HS
     Route: 048
  2. VYTORIN [Suspect]
     Route: 048
  3. LIPITOR [Suspect]
  4. LOVASTATIN [Suspect]
     Route: 048
  5. ZETIA [Suspect]
     Dosage: UNK
     Route: 048
     Dates: start: 20130211
  6. CARVEDILOL [Concomitant]

REACTIONS (5)
  - Cardiac operation [Unknown]
  - Feeling hot [Recovering/Resolving]
  - Myalgia [Recovering/Resolving]
  - Liver function test abnormal [Recovering/Resolving]
  - Drug ineffective [Unknown]
